FAERS Safety Report 7677980-4 (Version None)
Quarter: 2011Q3

REPORT INFORMATION
  Report Type: 
  Country: None (occurrence: None)
  Receive Date: 20110811
  Receipt Date: 20110804
  Transmission Date: 20111222
  Serious: Yes (Death)
  Sender: FDA-Public Use
  Company Number: US-GLAXOSMITHKLINE-A0931537A

PATIENT
  Age: 75 Year
  Sex: Male

DRUGS (1)
  1. SEREVENT [Suspect]
     Dosage: 50MCG UNKNOWN
     Route: 055
     Dates: end: 20110606

REACTIONS (1)
  - MYOCARDIAL INFARCTION [None]
